FAERS Safety Report 4866812-5 (Version None)
Quarter: 2005Q4

REPORT INFORMATION
  Report Type: 
  Country: None (occurrence: None)
  Receive Date: 20051222
  Receipt Date: 20051212
  Transmission Date: 20060501
  Serious: Yes (Hospitalization)
  Sender: FDA-Public Use
  Company Number: 2005-0008781

PATIENT
  Age: 37 Year
  Sex: Female
  Weight: 51.5 kg

DRUGS (4)
  1. TRUVADA [Suspect]
     Indication: HIV INFECTION
     Dosage: 1 DOSAGE FORMS 1 IN 1 D ORAL
     Route: 048
     Dates: start: 20050805, end: 20050809
  2. BACTRIM [Suspect]
     Indication: PNEUMOCYSTIS JIROVECI PNEUMONIA
     Dosage: ORAL
     Route: 048
     Dates: start: 20050727, end: 20050809
  3. SULFADIAZINE [Concomitant]
  4. KALETRA [Suspect]
     Dosage: 3 DOSAGE FORMS, 2 IN 1 D, ORAL
     Route: 048
     Dates: start: 20050805, end: 20050809

REACTIONS (2)
  - HEPATIC FAILURE [None]
  - MEDICATION ERROR [None]
